FAERS Safety Report 5843334-6 (Version None)
Quarter: 2008Q3

REPORT INFORMATION
  Report Type: 
  Country: None (occurrence: None)
  Receive Date: 20080812
  Receipt Date: 20080812
  Transmission Date: 20090109
  Serious: Yes (Other)
  Sender: FDA-Public Use
  Company Number: None

PATIENT
  Age: 31 Year
  Sex: Male
  Weight: 87.9978 kg

DRUGS (1)
  1. CLINDAMYCIN HCL [Suspect]
     Indication: DENTAL OPERATION
     Dosage: 4 TABLETS DAILY PO
     Route: 048
     Dates: start: 20080730, end: 20080808

REACTIONS (2)
  - ABDOMINAL PAIN UPPER [None]
  - RASH MACULAR [None]
